FAERS Safety Report 9311231 (Version 1)
Quarter: 2013Q2

REPORT INFORMATION
  Report Type: Spontaneous
  Country: US (occurrence: US)
  Receive Date: 20130528
  Receipt Date: 20130528
  Transmission Date: 20140414
  Serious: Yes (Hospitalization, Other)
  Sender: FDA-Public Use
  Company Number: US-SANOFI-AVENTIS-2013SA052646

PATIENT
  Age: 49 Year
  Sex: Female

DRUGS (2)
  1. LANTUS [Suspect]
     Indication: TYPE 2 DIABETES MELLITUS
     Dosage: THERAPY START DATE - 6 YEARS?DOSE - 40-65 UNITS
     Route: 051
  2. NOVOLOG [Concomitant]
     Dosage: DOSE - SLIDING SCALE 5 UNITS + THRICE A DAY DEPENDING ON HER BLOOD SUGAR

REACTIONS (6)
  - Cerebrovascular accident [Unknown]
  - Abasia [Unknown]
  - Hyperglycaemia [Unknown]
  - Hypertension [Unknown]
  - Blood pressure increased [Unknown]
  - Blood glucose increased [Unknown]
